FAERS Safety Report 4635316-7 (Version None)
Quarter: 2005Q2

REPORT INFORMATION
  Report Type: 
  Country: None (occurrence: None)
  Receive Date: 20050411
  Receipt Date: 20050401
  Transmission Date: 20051028
  Serious: Yes (Hospitalization, Other)
  Sender: FDA-Public Use
  Company Number: KII-2005-0015779

PATIENT
  Age: 2 Year
  Sex: Male

DRUGS (1)
  1. OXYCONTIN [Suspect]
     Indication: DRUG USE FOR UNKNOWN INDICATION
     Dosage: ORAL
     Route: 048

REACTIONS (6)
  - CYANOSIS [None]
  - GAIT DISTURBANCE [None]
  - RESPIRATORY ARREST [None]
  - SLEEP WALKING [None]
  - SOMNOLENCE [None]
  - VOMITING [None]
